FAERS Safety Report 20534157 (Version 1)
Quarter: 2022Q1

REPORT INFORMATION
  Report Type: Spontaneous
  Country: FR (occurrence: FR)
  Receive Date: 20220301
  Receipt Date: 20220301
  Transmission Date: 20220423
  Serious: Yes (Other)
  Sender: FDA-Public Use
  Company Number: FR-SUN PHARMACEUTICAL INDUSTRIES LTD-2022R1-327730

PATIENT
  Age: 4 Year
  Sex: Female

DRUGS (11)
  1. ASPIRIN [Suspect]
     Active Substance: ASPIRIN
     Indication: Ischaemia
     Dosage: UNK
     Route: 065
  2. METHYLPREDNISOLONE [Suspect]
     Active Substance: METHYLPREDNISOLONE
     Indication: Polyarteritis nodosa
     Dosage: 30 MILLIGRAM/KILOGRAM, DAILY
     Route: 040
  3. METHYLPREDNISOLONE [Suspect]
     Active Substance: METHYLPREDNISOLONE
     Dosage: 30 MILLIGRAM/KILOGRAM, DAILY
     Route: 040
  4. ALPROSTADIL [Suspect]
     Active Substance: ALPROSTADIL
     Indication: Ischaemia
     Dosage: 9.6 NG/KG, 1DOSE/MIN
     Route: 065
  5. AZATHIOPRINE [Suspect]
     Active Substance: AZATHIOPRINE
     Indication: Oedema peripheral
     Dosage: 1 MILLIGRAM/KILOGRAM, DAILY
     Route: 065
  6. AZATHIOPRINE [Suspect]
     Active Substance: AZATHIOPRINE
     Indication: Skin mass
  7. AZATHIOPRINE [Suspect]
     Active Substance: AZATHIOPRINE
     Indication: Lividity
  8. CYCLOPHOSPHAMIDE [Suspect]
     Active Substance: CYCLOPHOSPHAMIDE
     Indication: Oedema peripheral
     Dosage: 500 MILLIGRAM/SQ. METER
     Route: 065
  9. CYCLOPHOSPHAMIDE [Suspect]
     Active Substance: CYCLOPHOSPHAMIDE
     Indication: Skin mass
  10. CYCLOPHOSPHAMIDE [Suspect]
     Active Substance: CYCLOPHOSPHAMIDE
     Indication: Lividity
  11. PREDNISONE [Concomitant]
     Active Substance: PREDNISONE
     Indication: Polyarteritis nodosa
     Dosage: 4 MILLIGRAM/KILOGRAM, DAILY
     Route: 065

REACTIONS (1)
  - Drug ineffective [Unknown]
